FAERS Safety Report 7054576-9 (Version None)
Quarter: 2010Q4

REPORT INFORMATION
  Report Type: 
  Country: None (occurrence: None)
  Receive Date: 20101020
  Receipt Date: 20101011
  Transmission Date: 20110411
  Serious: Yes (Death, Life-Threatening, Other)
  Sender: FDA-Public Use
  Company Number: US-MPIJNJ-2010-04871

PATIENT
  Sex: Female
  Weight: 105.1 kg

DRUGS (4)
  1. VELCADE [Suspect]
     Indication: MYELOID LEUKAEMIA
     Dosage: 1.45 MG, UNK
     Route: 042
     Dates: start: 20100826, end: 20100905
  2. MITOXANTRONE [Suspect]
     Indication: MYELOID LEUKAEMIA
     Dosage: 12.42 MG, UNK
     Route: 042
     Dates: start: 20100826, end: 20100831
  3. ETOPOSIDE [Suspect]
     Indication: MYELOID LEUKAEMIA
     Dosage: 165.6 MG, UNK
     Route: 042
     Dates: start: 20100826, end: 20100831
  4. CYTARABINE [Suspect]
     Indication: MYELOID LEUKAEMIA
     Dosage: 2.070 MG, UNK
     Route: 042
     Dates: start: 20100826, end: 20100831

REACTIONS (3)
  - ATRIAL FIBRILLATION [None]
  - RENAL IMPAIRMENT [None]
  - SEPTIC SHOCK [None]
